FAERS Safety Report 9175664 (Version 1)
Quarter: 2013Q1

REPORT INFORMATION
  Report Type: Spontaneous
  Country: US (occurrence: US)
  Receive Date: 20130320
  Receipt Date: 20130320
  Transmission Date: 20140127
  Serious: Yes (Other)
  Sender: FDA-Public Use
  Company Number: US-EISAI INC-E2090-02558-SPO-US

PATIENT
  Age: 51 Year
  Sex: Female

DRUGS (8)
  1. ZONEGRAN [Suspect]
     Indication: EPILEPSY
     Dosage: 500 MG DAILY
     Route: 048
     Dates: start: 2003, end: 201211
  2. ZONEGRAN [Suspect]
     Dosage: 500 MG DAILY
     Route: 048
     Dates: end: 20130121
  3. CYMBALTA [Suspect]
     Indication: SPINAL CORD INJURY
     Dosage: 60 MG EACH EVENING
     Route: 048
     Dates: start: 2005, end: 201211
  4. CYMBALTA [Suspect]
     Dosage: 60 MG EACH EVENING
     Route: 048
     Dates: end: 20130121
  5. TEGRETOL [Suspect]
     Indication: EPILEPSY
     Dosage: UNKNOWN
     Route: 065
     Dates: end: 201211
  6. TEGRETOL [Suspect]
     Dosage: UNKNOWN
     Route: 065
     Dates: end: 20130121
  7. ADVAIR [Concomitant]
     Indication: PRODUCT USED FOR UNKNOWN INDICATION
     Dosage: UNKNOWN
     Route: 065
  8. SINGULAIR [Concomitant]
     Indication: PRODUCT USED FOR UNKNOWN INDICATION
     Dosage: UNKNOWN
     Route: 065

REACTIONS (2)
  - Anaphylactic reaction [Unknown]
  - Convulsion [Not Recovered/Not Resolved]
